FAERS Safety Report 7650313-5 (Version None)
Quarter: 2011Q3

REPORT INFORMATION
  Report Type: 
  Country: None (occurrence: None)
  Receive Date: 20110802
  Receipt Date: 20110728
  Transmission Date: 20111222
  Serious: Yes (Death, Hospitalization, Other)
  Sender: FDA-Public Use
  Company Number: US-AMGEN-QUU431561

PATIENT
  Age: 86 Year
  Sex: Male
  Weight: 80 kg

DRUGS (11)
  1. PREDNISONE TAB [Concomitant]
  2. DAPSONE [Concomitant]
     Dosage: 100 MG, QD
  3. RITUXIMAB [Concomitant]
     Dosage: UNK UNK, UNK
     Dates: start: 20090207, end: 20090227
  4. OMEPRAZOLE [Concomitant]
     Dosage: 20 MG, QD
     Route: 048
     Dates: start: 20090101
  5. ALBUTEROL [Concomitant]
     Dosage: UNK UNK, PRN
  6. FUROSEMIDE [Concomitant]
     Dosage: 20 MG, BID
  7. MULTI-VITAMINS [Concomitant]
  8. NPLATE [Suspect]
     Indication: IDIOPATHIC THROMBOCYTOPENIC PURPURA
     Dosage: 320 A?G, UNK
     Route: 058
     Dates: start: 20090201, end: 20090501
  9. AMLODIPINE BESYLATE [Concomitant]
     Dosage: 2.5 MG, QD
  10. DANAZOL [Concomitant]
     Dosage: 200 MG, QD
     Route: 048
     Dates: start: 20090101
  11. NITROGLYCERIN [Concomitant]
     Dosage: UNK UNK, PRN

REACTIONS (12)
  - CANDIDIASIS [None]
  - ATRIOVENTRICULAR BLOCK COMPLETE [None]
  - SKIN EXFOLIATION [None]
  - SMALL INTESTINAL OBSTRUCTION [None]
  - PULMONARY EMBOLISM [None]
  - DEATH [None]
  - BLOOD PHOSPHORUS DECREASED [None]
  - OEDEMA PERIPHERAL [None]
  - EMBOLISM [None]
  - THROMBOSIS [None]
  - DEEP VEIN THROMBOSIS [None]
  - THROMBOCYTOSIS [None]
